FAERS Safety Report 16108152 (Version 2)
Quarter: 2019Q1

REPORT INFORMATION
  Report Type: Report from Study
  Country: US (occurrence: US)
  Receive Date: 20190322
  Receipt Date: 20190330
  Transmission Date: 20190418
  Serious: Yes (Hospitalization)
  Sender: FDA-Public Use
  Company Number: US-TAKEDA-2019TUS016266

PATIENT
  Sex: Female
  Weight: 86.17 kg

DRUGS (1)
  1. VEDOLIZUMAB [Suspect]
     Active Substance: VEDOLIZUMAB
     Indication: CROHN^S DISEASE
     Dosage: 300 MILLIGRAM
     Route: 042
     Dates: start: 20180116, end: 20181121

REACTIONS (4)
  - Fatigue [Recovering/Resolving]
  - Vomiting [Recovered/Resolved]
  - Drug ineffective [Unknown]
  - Crohn^s disease [Unknown]
